FAERS Safety Report 9278375 (Version 1)
Quarter: 2013Q2

REPORT INFORMATION
  Report Type: Report from Study
  Country: CN (occurrence: CN)
  Receive Date: 20130508
  Receipt Date: 20130508
  Transmission Date: 20140414
  Serious: Yes (Other)
  Sender: FDA-Public Use
  Company Number: CN-PFIZER INC-2013141086

PATIENT
  Sex: Female

DRUGS (3)
  1. SIROLIMUS [Suspect]
     Indication: LUPUS NEPHRITIS
     Dosage: 5 MG, SINGLE
  2. SIROLIMUS [Suspect]
     Dosage: 2 MG, 1X/DAY
  3. SIROLIMUS [Suspect]
     Dosage: DOSE ADJUSTED TO AIM FOR TARGET TROUGH BLOOD LEVELS OF 4-6 UG/L

REACTIONS (1)
  - Cholecystitis acute [Unknown]
